FAERS Safety Report 17007346 (Version 1)
Quarter: 2019Q4

REPORT INFORMATION
  Report Type: Spontaneous
  Country: CA (occurrence: CA)
  Receive Date: 20191108
  Receipt Date: 20191108
  Transmission Date: 20200122
  Serious: Yes (Hospitalization)
  Sender: FDA-Public Use
  Company Number: CA-PFIZER INC-2019477037

PATIENT
  Age: 41 Year
  Sex: Female
  Weight: 98 kg

DRUGS (13)
  1. ACETAMINOPHEN. [Concomitant]
     Active Substance: ACETAMINOPHEN
     Dosage: UNK
  2. METOCLOPRAMIDE. [Concomitant]
     Active Substance: METOCLOPRAMIDE
     Dosage: UNK
  3. NEULASTA [Concomitant]
     Active Substance: PEGFILGRASTIM
     Dosage: UNK
     Route: 058
  4. PACLITAXEL. [Suspect]
     Active Substance: PACLITAXEL
     Dosage: UNK
     Route: 042
  5. PERJETA [Suspect]
     Active Substance: PERTUZUMAB
     Dosage: 840 MG, EVERY 3 WEEKS
     Route: 042
  6. TAXOTERE [Suspect]
     Active Substance: DOCETAXEL
     Indication: BREAST CANCER METASTATIC
     Dosage: UNK
     Route: 042
  7. TRASTUZUMAB. [Suspect]
     Active Substance: TRASTUZUMAB
     Indication: BREAST CANCER METASTATIC
  8. DESVENLAFAXINE SUCCINATE. [Concomitant]
     Active Substance: DESVENLAFAXINE SUCCINATE
     Dosage: UNK
  9. NAPROXEN. [Suspect]
     Active Substance: NAPROXEN
     Dosage: UNK
  10. TAXOL [Suspect]
     Active Substance: PACLITAXEL
     Dosage: UNK
     Route: 042
  11. PERJETA [Suspect]
     Active Substance: PERTUZUMAB
     Indication: BREAST CANCER METASTATIC
     Dosage: 420 MG, EVERY 3 WEEKS
     Route: 042
  12. TRASTUZUMAB. [Suspect]
     Active Substance: TRASTUZUMAB
     Dosage: UNK
  13. LOPERAMIDE [Concomitant]
     Active Substance: LOPERAMIDE
     Dosage: UNK

REACTIONS (25)
  - Blood magnesium decreased [Not Recovered/Not Resolved]
  - Neutrophil count increased [Not Recovered/Not Resolved]
  - Pneumonia [Not Recovered/Not Resolved]
  - Protein total decreased [Not Recovered/Not Resolved]
  - Wound [Not Recovered/Not Resolved]
  - Platelet count decreased [Not Recovered/Not Resolved]
  - Blood bilirubin increased [Not Recovered/Not Resolved]
  - Oxygen saturation decreased [Not Recovered/Not Resolved]
  - Respiration abnormal [Not Recovered/Not Resolved]
  - Blood disorder [Not Recovered/Not Resolved]
  - Hypotension [Not Recovered/Not Resolved]
  - Infusion related reaction [Not Recovered/Not Resolved]
  - Haematocrit decreased [Not Recovered/Not Resolved]
  - Pleural effusion [Not Recovered/Not Resolved]
  - Red blood cell count decreased [Not Recovered/Not Resolved]
  - Red cell distribution width increased [Not Recovered/Not Resolved]
  - Urinary tract infection [Not Recovered/Not Resolved]
  - Weight decreased [Not Recovered/Not Resolved]
  - Fatigue [Not Recovered/Not Resolved]
  - Blood alkaline phosphatase increased [Not Recovered/Not Resolved]
  - Blood calcium decreased [Not Recovered/Not Resolved]
  - Blood creatinine decreased [Not Recovered/Not Resolved]
  - Blood lactate dehydrogenase increased [Not Recovered/Not Resolved]
  - Lymphocyte count decreased [Not Recovered/Not Resolved]
  - Spinal fracture [Not Recovered/Not Resolved]
